FAERS Safety Report 11642045 (Version 2)
Quarter: 2015Q4

REPORT INFORMATION
  Report Type: Report from Study
  Country: CA (occurrence: CA)
  Receive Date: 20151019
  Receipt Date: 20151116
  Transmission Date: 20160304
  Serious: Yes (Hospitalization)
  Sender: FDA-Public Use
  Company Number: CA-OTSUKA-2015_010940

PATIENT
  Sex: Female
  Weight: 90 kg

DRUGS (2)
  1. ARIPIPRAZOLE. [Suspect]
     Active Substance: ARIPIPRAZOLE
     Indication: SCHIZOPHRENIA
     Dosage: 400 MG, EVERY 4 WEEKS
     Route: 030
     Dates: start: 20150724
  2. ARIPIPRAZOLE. [Suspect]
     Active Substance: ARIPIPRAZOLE
     Dosage: 400 MG, EVERY 3 WEEKS
     Route: 030
     Dates: start: 2015

REACTIONS (3)
  - Drug effect incomplete [Not Recovered/Not Resolved]
  - Inappropriate schedule of drug administration [Unknown]
  - Hospitalisation [Unknown]
